FAERS Safety Report 12708120 (Version 2)
Quarter: 2016Q4

REPORT INFORMATION
  Report Type: Report from Study
  Country: BR (occurrence: BR)
  Receive Date: 20160901
  Receipt Date: 20161007
  Transmission Date: 20170207
  Serious: Yes (Hospitalization)
  Sender: FDA-Public Use
  Company Number: BR-UCBSA-2016025062

PATIENT
  Age: 56 Year
  Sex: Male
  Weight: 90 kg

DRUGS (11)
  1. SELOZOK [Concomitant]
     Active Substance: METOPROLOL SUCCINATE
     Indication: ATROPHY
     Dosage: 25 MG, 3X/DAY (TID)
     Route: 048
     Dates: start: 2012
  2. LEVAMLODIPINE [Concomitant]
     Active Substance: LEVAMLODIPINE
  3. FUROSEMIDA [Concomitant]
     Active Substance: FUROSEMIDE
     Indication: HYPERTENSION
     Dosage: 40 MG, 3X/DAY (TID)
     Route: 048
     Dates: start: 2012
  4. TENOXICAN [Concomitant]
  5. TENOXICAM [Concomitant]
     Active Substance: TENOXICAM
     Indication: PAIN
     Dosage: UNK
     Route: 042
     Dates: start: 201603
  6. CERTOLIZUMAB PEGOL [Suspect]
     Active Substance: CERTOLIZUMAB PEGOL
     Indication: RHEUMATOID ARTHRITIS
     Dosage: 400 MG, EV 2 WEEKS(QOW)
     Dates: start: 20160623
  7. GABAPENTIN. [Concomitant]
     Active Substance: GABAPENTIN
     Indication: ATROPHY
     Dosage: 400 MG, ONCE DAILY (QD)
     Route: 048
     Dates: start: 2012
  8. VALSARTAN. [Concomitant]
     Active Substance: VALSARTAN
     Indication: HYPERTENSION
     Dosage: 160 MG, 2X/DAY (BID)
     Route: 048
     Dates: start: 2012
  9. SIMETHICONE (DIMETHICONE) [Concomitant]
     Active Substance: DIMETHICONE
     Indication: FLATULENCE
     Dosage: 125 MG, 3X/DAY (TID)
     Route: 048
     Dates: start: 20160806, end: 20160819
  10. OXYGEN. [Concomitant]
     Active Substance: OXYGEN
     Indication: DYSPNOEA
     Dosage: UNK
     Route: 055
     Dates: start: 20160806, end: 20160806
  11. ALPRAZOLAN [Concomitant]
     Active Substance: ALPRAZOLAM
     Indication: INSOMNIA
     Dosage: 2 MG, ONCE DAILY (QD)
     Route: 048
     Dates: start: 2012

REACTIONS (10)
  - Crystal urine present [Not Recovered/Not Resolved]
  - Abdominal pain [Recovered/Resolved]
  - Application site pain [Recovered/Resolved]
  - Influenza like illness [Recovered/Resolved]
  - Flatulence [Recovered/Resolved]
  - Abdominal hernia [Recovered/Resolved]
  - Pain in extremity [Not Recovered/Not Resolved]
  - Therapeutic response unexpected [Not Recovered/Not Resolved]
  - Arthralgia [Not Recovered/Not Resolved]
  - Dyspnoea [Recovered/Resolved]

NARRATIVE: CASE EVENT DATE: 2016
